FAERS Safety Report 12136521 (Version 1)
Quarter: 2016Q1

REPORT INFORMATION
  Report Type: Spontaneous
  Country: US (occurrence: None)
  Receive Date: 20160301
  Receipt Date: 20160301
  Transmission Date: 20160526
  Serious: Yes (Death, Hospitalization)
  Sender: FDA-Public Use
  Company Number: None

PATIENT
  Age: 24 Year
  Sex: Male
  Weight: 110 kg

DRUGS (2)
  1. ASTHMANEFRIN [Suspect]
     Active Substance: RACEPINEPHRINE HYDROCHLORIDE
     Indication: ASTHMA
     Dosage: NEBULIZER PRN/AS NEEDED RESPIRATORY RECENT USE
     Route: 055
  2. NOVOLOG INSULIN PUMP [Concomitant]

REACTIONS (12)
  - Respiratory disorder [None]
  - Nausea [None]
  - Pulseless electrical activity [None]
  - Brain oedema [None]
  - Gastrointestinal disorder [None]
  - Malaise [None]
  - Cardiac arrest [None]
  - Haematochezia [None]
  - Vomiting [None]
  - Brain herniation [None]
  - Unresponsive to stimuli [None]
  - Subarachnoid haemorrhage [None]

NARRATIVE: CASE EVENT DATE: 20160224
